FAERS Safety Report 25221921 (Version 1)
Quarter: 2025Q2

REPORT INFORMATION
  Report Type: Spontaneous
  Country: US (occurrence: US)
  Receive Date: 20250421
  Receipt Date: 20250421
  Transmission Date: 20250716
  Serious: No
  Sender: MYLAN
  Company Number: US-MYLANLABS-2025M1032868

PATIENT

DRUGS (1)
  1. ZOLOFT [Suspect]
     Active Substance: SERTRALINE HYDROCHLORIDE
     Indication: Product used for unknown indication

REACTIONS (5)
  - Affective disorder [Unknown]
  - Amnesia [Unknown]
  - Depression [Unknown]
  - Anxiety [Unknown]
  - Insomnia [Unknown]
